FAERS Safety Report 19886417 (Version 1)
Quarter: 2021Q3

REPORT INFORMATION
  Report Type: Spontaneous
  Country: IN (occurrence: IN)
  Receive Date: 20210927
  Receipt Date: 20210927
  Transmission Date: 20211014
  Serious: Yes (Hospitalization, Disabling, Congenital Anomaly)
  Sender: FDA-Public Use
  Company Number: IN-TORRENT-00002911

PATIENT
  Age: 13 Year
  Sex: Female

DRUGS (1)
  1. OLANZAPINE. [Suspect]
     Active Substance: OLANZAPINE
     Indication: PSYCHOTIC DISORDER
     Dosage: UNKNOWN

REACTIONS (9)
  - Musculoskeletal stiffness [Unknown]
  - Tremor [Unknown]
  - Logorrhoea [Unknown]
  - Pyrexia [Unknown]
  - Pallor [Unknown]
  - Rash macular [Unknown]
  - Dermatitis bullous [Unknown]
  - Depressed level of consciousness [Unknown]
  - Thinking abnormal [Unknown]
